FAERS Safety Report 6980051-3 (Version None)
Quarter: 2010Q3

REPORT INFORMATION
  Report Type: 
  Country: None (occurrence: None)
  Receive Date: 20100914
  Receipt Date: 20100902
  Transmission Date: 20110219
  Serious: Yes (Other)
  Sender: FDA-Public Use
  Company Number: JP-PFIZER INC-2010108093

PATIENT
  Age: 36 Year
  Sex: Female

DRUGS (2)
  1. SERTRALINE HYDROCHLORIDE [Suspect]
     Indication: MAJOR DEPRESSION
     Dosage: 75 MG, UNK
  2. SERTRALINE HYDROCHLORIDE [Suspect]
     Indication: PREMENSTRUAL SYNDROME

REACTIONS (3)
  - DELUSION [None]
  - FEELING ABNORMAL [None]
  - PSYCHOTIC DISORDER [None]
